FAERS Safety Report 13781865 (Version 4)
Quarter: 2017Q4

REPORT INFORMATION
  Report Type: Report from Study
  Country: None (occurrence: NZ)
  Receive Date: 20170724
  Receipt Date: 20171205
  Transmission Date: 20180320
  Serious: Yes (Disabling, Other)
  Sender: FDA-Public Use
  Company Number: NZ-ABBVIE-17K-118-2048364-00

PATIENT
  Sex: Female
  Weight: 81 kg

DRUGS (2)
  1. HUMIRA [Suspect]
     Active Substance: ADALIMUMAB
     Indication: RHEUMATOID ARTHRITIS
     Route: 058
     Dates: start: 20151027, end: 20170208
  2. HUMIRA [Suspect]
     Active Substance: ADALIMUMAB
     Indication: MUSCULAR WEAKNESS

REACTIONS (12)
  - Muscle contractions involuntary [Unknown]
  - Bulbar palsy [Not Recovered/Not Resolved]
  - Postoperative wound complication [Unknown]
  - Dysphagia [Not Recovered/Not Resolved]
  - Hyperreflexia [Unknown]
  - Dysgeusia [Unknown]
  - Muscular weakness [Unknown]
  - Ovarian neoplasm [Unknown]
  - Choking [Unknown]
  - Joint range of motion decreased [Unknown]
  - Affect lability [Unknown]
  - Neuropathic muscular atrophy [Unknown]

NARRATIVE: CASE EVENT DATE: 2015
